FAERS Safety Report 8816566 (Version 1)
Quarter: 2012Q4

REPORT INFORMATION
  Report Type: Spontaneous
  Country: US (occurrence: None)
  Receive Date: 20120928
  Receipt Date: 20120928
  Transmission Date: 20130627
  Serious: Yes (Other)
  Sender: FDA-Public Use
  Company Number: ADE12-090

PATIENT
  Age: 77 Year
  Sex: Male
  Weight: 96.2 kg

DRUGS (11)
  1. ROCURONIUM BROMIDE [Suspect]
     Indication: SPINAL HEMILAMINECTOMY
     Route: 042
     Dates: start: 20120917, end: 20120917
  2. PROPOFOL [Concomitant]
  3. FENTANYL [Concomitant]
  4. LIDOCAINE [Concomitant]
  5. BUPIVACAINE [Concomitant]
  6. CEFAZOLIN [Concomitant]
  7. EPHEDRINE [Concomitant]
  8. GLYCOPYRROLATE [Concomitant]
  9. NEOSTIGMINE [Concomitant]
  10. LIDOCAINE WITH EPINEPHRINE [Concomitant]
  11. THROMBIN [Concomitant]

REACTIONS (1)
  - Drug ineffective [None]
